FAERS Safety Report 9238828 (Version 1)
Quarter: 2013Q2

REPORT INFORMATION
  Report Type: Spontaneous
  Country: US (occurrence: None)
  Receive Date: 20130417
  Receipt Date: 20130417
  Transmission Date: 20140414
  Serious: Yes (Other)
  Sender: FDA-Public Use
  Company Number: None

PATIENT
  Age: 79 Year
  Sex: Male
  Weight: 93.8 kg

DRUGS (1)
  1. DABIGATRAN 1 [Suspect]
     Indication: ATRIAL FIBRILLATION
     Route: 048
     Dates: start: 20130115, end: 20130228

REACTIONS (1)
  - Anaemia [None]
